FAERS Safety Report 7506782-4 (Version None)
Quarter: 2011Q2

REPORT INFORMATION
  Report Type: 
  Country: None (occurrence: None)
  Receive Date: 20110526
  Receipt Date: 20110513
  Transmission Date: 20111010
  Serious: Yes (Death)
  Sender: FDA-Public Use
  Company Number: A0824954A

PATIENT
  Age: 57 Year
  Sex: Female

DRUGS (6)
  1. HUMULIN R [Concomitant]
  2. PRAVACHOL [Concomitant]
  3. SYNTHROID [Concomitant]
  4. HUMALOG [Concomitant]
  5. ACCUPRIL [Concomitant]
  6. AVANDIA [Suspect]
     Indication: DIABETES MELLITUS
     Dosage: 8MG PER DAY
     Route: 048
     Dates: start: 20000101, end: 20050607

REACTIONS (3)
  - MYOCARDIAL INFARCTION [None]
  - MYOCARDIAL ISCHAEMIA [None]
  - CARDIAC FAILURE CONGESTIVE [None]
